FAERS Safety Report 4587238-8 (Version None)
Quarter: 2005Q1

REPORT INFORMATION
  Report Type: 
  Country: None (occurrence: None)
  Receive Date: 20050215
  Receipt Date: 20050202
  Transmission Date: 20050727
  Serious: Yes (Life-Threatening)
  Sender: FDA-Public Use
  Company Number: 211073

PATIENT
  Age: 78 Year
  Sex: Female
  Weight: 62.1 kg

DRUGS (14)
  1. AVASTIN [Suspect]
     Indication: COLON CANCER METASTATIC
     Dosage: 330 MG, Q2W, INTRAVENOUS
     Route: 042
     Dates: start: 20041006, end: 20041217
  2. FLUOROURACIL [Concomitant]
  3. OXALIPLATIN [Concomitant]
  4. INFED [Concomitant]
  5. LASIX [Concomitant]
  6. POTASSIUM (POTASSIUM NOS) [Concomitant]
  7. SEREVENT [Concomitant]
  8. AZMACORT [Concomitant]
  9. AMINOPHYLLIN [Concomitant]
  10. ALBUITEROL (ALBUTEROL SULFATE, ALBUTEROL) [Concomitant]
  11. CARDIZEM [Concomitant]
  12. VASOTEC [Concomitant]
  13. TOPROL (METOPROLOL SUCCINATE) [Concomitant]
  14. LEUCOVORIN CALCIUM [Concomitant]

REACTIONS (21)
  - ABDOMINAL MASS [None]
  - ABDOMINAL PAIN UPPER [None]
  - ANAEMIA [None]
  - ASTHENIA [None]
  - ATRIAL TACHYCARDIA [None]
  - BLOOD ALBUMIN DECREASED [None]
  - BRONCHOSPASM [None]
  - CACHEXIA [None]
  - CARDIAC FAILURE CONGESTIVE [None]
  - DEHYDRATION [None]
  - ELECTROCARDIOGRAM POOR R-WAVE PROGRESSION [None]
  - ELECTROCARDIOGRAM T WAVE INVERSION [None]
  - HEART RATE IRREGULAR [None]
  - HYPERKALAEMIA [None]
  - HYPONATRAEMIA [None]
  - MALNUTRITION [None]
  - MITRAL VALVE INCOMPETENCE [None]
  - OEDEMA PERIPHERAL [None]
  - ORAL INTAKE REDUCED [None]
  - STRESS [None]
  - WEIGHT DECREASED [None]
